FAERS Safety Report 7962642-6 (Version None)
Quarter: 2011Q4

REPORT INFORMATION
  Report Type: 
  Country: None (occurrence: None)
  Receive Date: 20111207
  Receipt Date: 20111130
  Transmission Date: 20120403
  Serious: Yes (Life-Threatening, Hospitalization, Other)
  Sender: FDA-Public Use
  Company Number: US-SANOFI-AVENTIS-2011SA078688

PATIENT
  Age: 75 Year
  Sex: Female
  Weight: 95 kg

DRUGS (3)
  1. ALL OTHER THERAPEUTIC PRODUCTS [Concomitant]
  2. PLAVIX [Suspect]
     Route: 048
     Dates: start: 19990101
  3. PLAVIX [Suspect]
     Indication: STENT PLACEMENT
     Route: 048
     Dates: start: 19990101

REACTIONS (16)
  - NERVOUS SYSTEM DISORDER [None]
  - WEIGHT FLUCTUATION [None]
  - CORONARY ARTERY DISEASE [None]
  - HYPOKALAEMIA [None]
  - BLOOD GLUCOSE INCREASED [None]
  - CEREBROVASCULAR ACCIDENT [None]
  - MENTAL IMPAIRMENT [None]
  - AFFECT LABILITY [None]
  - MEMORY IMPAIRMENT [None]
  - DYSPNOEA [None]
  - CEREBRAL INFARCTION [None]
  - HYPERTENSION [None]
  - GAIT DISTURBANCE [None]
  - BLOOD PRESSURE FLUCTUATION [None]
  - ORTHOSTATIC HYPOTENSION [None]
  - MALAISE [None]
